FAERS Safety Report 20933150 (Version 2)
Quarter: 2022Q2

REPORT INFORMATION
  Report Type: Spontaneous
  Country: PL (occurrence: PL)
  Receive Date: 20220608
  Receipt Date: 20220615
  Transmission Date: 20220720
  Serious: Yes (Hospitalization, Other)
  Sender: FDA-Public Use
  Company Number: PL-AMGEN-POLSP2022088316

PATIENT
  Age: 73 Year
  Sex: Female

DRUGS (10)
  1. FILGRASTIM [Suspect]
     Active Substance: FILGRASTIM
     Indication: Prophylaxis
     Dosage: 48 MILLION IU
     Route: 065
     Dates: start: 2020
  2. DARBEPOETIN ALFA [Suspect]
     Active Substance: DARBEPOETIN ALFA
     Indication: Anaemia
     Dosage: 500 MICROGRAM
     Route: 065
     Dates: start: 2020
  3. INDAPAMIDE [Concomitant]
     Active Substance: INDAPAMIDE
     Dosage: 1.5 MILLIGRAM
     Dates: start: 2020
  4. NADROPARIN CALCIUM [Concomitant]
     Active Substance: NADROPARIN CALCIUM
     Dosage: 0.6 MILLILITER
     Dates: start: 2020
  5. IRON(III) ISOMALTOSIDE 1000 [Concomitant]
     Indication: Mineral supplementation
     Dates: start: 2020
  6. QUETIAPINE [Concomitant]
     Active Substance: QUETIAPINE
     Dosage: 25 MILLIGRAM
     Dates: start: 2020
  7. OMEPRAZOLE [Concomitant]
     Active Substance: OMEPRAZOLE
     Dosage: 40 MILLIGRAM
     Dates: start: 2020
  8. NITRENDIPINE [Concomitant]
     Active Substance: NITRENDIPINE
     Dosage: 10 MILLIGRAM, QD
     Dates: start: 2020
  9. RAMIPRIL [Concomitant]
     Active Substance: RAMIPRIL
     Dosage: 100 MILLIGRAM
     Dates: start: 2020
  10. CLOPIDOGREL [Concomitant]
     Active Substance: CLOPIDOGREL BISULFATE
     Dosage: 75 MILLIGRAM
     Dates: start: 2020

REACTIONS (20)
  - Hepatomegaly [Unknown]
  - Disorientation [Unknown]
  - Memory impairment [Unknown]
  - Bradyphrenia [Unknown]
  - Tonic convulsion [Unknown]
  - Necrosis [Unknown]
  - Orthostatic hypotension [Unknown]
  - Constipation [Unknown]
  - Skin laceration [Unknown]
  - Pyrexia [Unknown]
  - Decubitus ulcer [Unknown]
  - Blood pressure increased [Recovered/Resolved]
  - Anaemia [Recovering/Resolving]
  - COVID-19 [Recovered/Resolved]
  - Malaise [Unknown]
  - Pallor [Unknown]
  - Dehydration [Unknown]
  - Nausea [Unknown]
  - Vomiting [Unknown]
  - Fall [Unknown]

NARRATIVE: CASE EVENT DATE: 20200101
